FAERS Safety Report 6596250-9 (Version None)
Quarter: 2010Q1

REPORT INFORMATION
  Report Type: 
  Country: None (occurrence: None)
  Receive Date: 20100223
  Receipt Date: 20100215
  Transmission Date: 20100710
  Serious: Yes (Hospitalization)
  Sender: FDA-Public Use
  Company Number: FR-ROCHE-686046

PATIENT
  Sex: Female

DRUGS (3)
  1. AVASTIN [Suspect]
     Indication: PLEURA CARCINOMA
     Dosage: FORM: INFUSION
     Route: 042
     Dates: start: 20090701, end: 20091212
  2. GEMZAR [Concomitant]
     Dosage: THE PATIENT RECEIVED 4 CYCLES
     Route: 065
     Dates: start: 20090601, end: 20090901
  3. CISPLATIN [Concomitant]
     Dosage: THE PATIENT RECEIVED 4 CYCLES
     Dates: start: 20090601, end: 20090915

REACTIONS (1)
  - EPILEPSY [None]
